FAERS Safety Report 5427816-7 (Version None)
Quarter: 2007Q3

REPORT INFORMATION
  Report Type: 
  Country: None (occurrence: None)
  Receive Date: 20070828
  Receipt Date: 20070815
  Transmission Date: 20080115
  Serious: Yes (Hospitalization)
  Sender: FDA-Public Use
  Company Number: US-ELI_LILLY_AND_COMPANY-US200704001281

PATIENT
  Age: 80 Year
  Sex: Female
  Weight: 48.526 kg

DRUGS (6)
  1. FORTEO [Suspect]
     Indication: OSTEOPOROSIS
     Dosage: UNK, UNK
     Dates: start: 20070327
  2. FORTEO [Suspect]
     Dosage: UNK, UNK
     Dates: start: 20061001, end: 20060101
  3. CALCIUM CARBONATE [Concomitant]
  4. MULTI-VITAMIN [Concomitant]
  5. THYROID TAB [Concomitant]
  6. SYNTHROID [Concomitant]

REACTIONS (8)
  - ANXIETY [None]
  - BLOOD CALCIUM INCREASED [None]
  - DYSPNOEA [None]
  - FATIGUE [None]
  - HIP FRACTURE [None]
  - OEDEMA PERIPHERAL [None]
  - OSTEOARTHRITIS [None]
  - PEDAL PULSE DECREASED [None]
